FAERS Safety Report 4786074-7 (Version None)
Quarter: 2005Q3

REPORT INFORMATION
  Report Type: 
  Country: None (occurrence: None)
  Receive Date: 20050930
  Receipt Date: 20050914
  Transmission Date: 20060218
  Serious: Yes (Other)
  Sender: FDA-Public Use
  Company Number: CEL-2005-00503-ROC

PATIENT
  Age: 13 Year
  Sex: Female
  Weight: 46 kg

DRUGS (4)
  1. METADATE CD [Suspect]
     Indication: ATTENTION DEFICIT/HYPERACTIVITY DISORDER
     Dosage: 20 MG/D PO
     Route: 048
     Dates: start: 20030323, end: 20030426
  2. METADATE CD [Suspect]
     Indication: ATTENTION DEFICIT/HYPERACTIVITY DISORDER
     Dosage: 20 MG 2/D PO
     Route: 048
     Dates: start: 20030427, end: 20050323
  3. METHYLPHENIDATE HCL [Concomitant]
  4. NAPROGESIC [Concomitant]

REACTIONS (6)
  - AGGRESSION [None]
  - DEPRESSION [None]
  - INCORRECT DOSE ADMINISTERED [None]
  - INTENTIONAL SELF-INJURY [None]
  - MOOD SWINGS [None]
  - SKIN LACERATION [None]
